FAERS Safety Report 14443855 (Version 1)
Quarter: 2018Q1

REPORT INFORMATION
  Report Type: Spontaneous
  Country: US (occurrence: US)
  Receive Date: 20180125
  Receipt Date: 20180125
  Transmission Date: 20180509
  Serious: Yes (Hospitalization)
  Sender: FDA-Public Use
  Company Number: None

PATIENT
  Age: 61 Year
  Sex: Male
  Weight: 84.4 kg

DRUGS (1)
  1. RITUXIMAB (MOAB C2B8 ANTI CD20, CHIMERIC) [Suspect]
     Active Substance: RITUXIMAB
     Dates: end: 20171228

REACTIONS (6)
  - Oropharyngeal pain [None]
  - Neutropenia [None]
  - Pyrexia [None]
  - Chills [None]
  - Cough [None]
  - Influenza [None]

NARRATIVE: CASE EVENT DATE: 20180108
